FAERS Safety Report 4429865-4 (Version None)
Quarter: 2004Q3

REPORT INFORMATION
  Report Type: 
  Country: None (occurrence: None)
  Receive Date: 20040820
  Receipt Date: 20040810
  Transmission Date: 20050211
  Serious: Yes (Other)
  Sender: FDA-Public Use
  Company Number: US-JNJFOC-20040500432

PATIENT
  Sex: Female
  Weight: 97.98 kg

DRUGS (1)
  1. NECON 7/7/7 [Suspect]
     Indication: CONTRACEPTION
     Route: 049
     Dates: start: 20040418, end: 20040428

REACTIONS (4)
  - COMA [None]
  - CONVULSION [None]
  - PRURITUS [None]
  - THROAT TIGHTNESS [None]
